FAERS Safety Report 9238185 (Version 1)
Quarter: 2013Q2

REPORT INFORMATION
  Report Type: Spontaneous
  Country: US (occurrence: None)
  Receive Date: 20130415
  Receipt Date: 20130415
  Transmission Date: 20140414
  Serious: Yes (Other)
  Sender: FDA-Public Use
  Company Number: ACO_35380_2013

PATIENT
  Age: 52 Year
  Sex: Female

DRUGS (17)
  1. AMPYRA (DALFAMPRIDINE) TABLET, 10MG [Suspect]
     Indication: PRODUCT USED FOR UNKNOWN INDICATION
     Route: 048
     Dates: start: 20120614
  2. FUROSEMIDE (FUROSEMIDE) [Concomitant]
  3. VOLTAREN (DICLOFENAC SODIUM) [Concomitant]
  4. DIOVAN (VALSARTAN) [Concomitant]
  5. CARVEDILOL (CARVEDILOL) [Concomitant]
  6. SIMVASTATIN (SIMVASTATIN) [Concomitant]
  7. PRILOSEC [Concomitant]
  8. SPIRONOLACTONE (SPIRONOLACTONE) [Concomitant]
  9. PROZAC (FLUOXETINE HYDROCHLORIDE) [Concomitant]
  10. MULTIVITAMIN (VITAMINS NOS) [Concomitant]
  11. COMBIVENT (IPRATROPIUM BROMIDE, SALBUTAMOL SULFATE) AEROSOL (SPRAY AND INHALATION) [Concomitant]
  12. POTASSIUM (POTASSIUM) [Concomitant]
  13. VITAMIN D (ERGOCALCIFEROL) [Concomitant]
  14. FISH OIL (FISH OIL) [Concomitant]
  15. COENZYME Q10 (COENZYME Q10) [Concomitant]
  16. MAGNESIUM (MAGNESIUM) [Concomitant]
  17. BABY ASPIRIN (ACETYLSALICYLIC ACID) [Concomitant]

REACTIONS (1)
  - Pulmonary embolism [None]
